FAERS Safety Report 18146744 (Version 2)
Quarter: 2020Q3

REPORT INFORMATION
  Report Type: Spontaneous
  Country: US (occurrence: US)
  Receive Date: 20200813
  Receipt Date: 20200824
  Transmission Date: 20201103
  Serious: No
  Sender: FDA-Public Use
  Company Number: US-PFIZER INC-2020309593

PATIENT
  Age: 65 Year
  Sex: Male
  Weight: 66.68 kg

DRUGS (2)
  1. SUTENT [Suspect]
     Active Substance: SUNITINIB MALATE
     Dosage: 50 MG, CYCLIC (50MG 1 CAPSULE BY MOUTH DAILY FOR 2 WEEKS THEN OFF 1 WEEK AND BACK ON FOR 2 WEEKS)
     Route: 048
  2. SUTENT [Suspect]
     Active Substance: SUNITINIB MALATE
     Indication: GASTROINTESTINAL STROMAL TUMOUR
     Dosage: 50 MG, CYCLIC (ON THE MEDICATION FOR 4 WEEKS THEN OFF FOR 2 WEEKS)
     Route: 048
     Dates: start: 201907

REACTIONS (2)
  - Pain in extremity [Not Recovered/Not Resolved]
  - Paraesthesia [Unknown]

NARRATIVE: CASE EVENT DATE: 2020
